FAERS Safety Report 4635434-3 (Version None)
Quarter: 2005Q2

REPORT INFORMATION
  Report Type: 
  Country: None (occurrence: None)
  Receive Date: 20050413
  Receipt Date: 20050408
  Transmission Date: 20051028
  Serious: Yes (Death, Other)
  Sender: FDA-Public Use
  Company Number: 05-04-0565

PATIENT
  Age: 55 Year
  Sex: Male

DRUGS (1)
  1. CLOZAPINE [Suspect]
     Indication: SCHIZOPHRENIA
     Dosage: 25-200 QD ORAL
     Route: 048
     Dates: start: 20040601, end: 20040301

REACTIONS (2)
  - LUNG ABSCESS [None]
  - PULMONARY MASS [None]
